FAERS Safety Report 5759329-7 (Version None)
Quarter: 2008Q2

REPORT INFORMATION
  Report Type: 
  Country: None (occurrence: None)
  Receive Date: 20080530
  Receipt Date: 20080506
  Transmission Date: 20081010
  Serious: Yes (Other)
  Sender: FDA-Public Use
  Company Number: STI-2007-01775

PATIENT
  Age: 29 Year
  Sex: Female

DRUGS (1)
  1. 516A CLINDOXYL GEL (CLINDAMYCIN + BENZOYL PEROXIDE) (BENZOYL PEROXIDE [Suspect]
     Dosage: (THIN LAYER TO FACE) TOPICAL
     Route: 061
     Dates: start: 20071005, end: 20071006

REACTIONS (7)
  - APPLICATION SITE ERYTHEMA [None]
  - APPLICATION SITE OEDEMA [None]
  - APPLICATION SITE PAIN [None]
  - APPLICATION SITE PRURITUS [None]
  - APPLICATION SITE RASH [None]
  - DISCOMFORT [None]
  - FACE OEDEMA [None]
